FAERS Safety Report 4697342-1 (Version None)
Quarter: 2005Q2

REPORT INFORMATION
  Report Type: 
  Country: None (occurrence: None)
  Receive Date: 20050620
  Receipt Date: 20050602
  Transmission Date: 20051028
  Serious: Yes (Other)
  Sender: FDA-Public Use
  Company Number: DSA_26563_2005

PATIENT
  Age: 38 Year
  Sex: Male

DRUGS (6)
  1. TEMESTA [Suspect]
     Dosage: 2 MG Q DAY
     Dates: start: 20050401, end: 20050418
  2. DEPAKENE [Suspect]
     Dosage: 500 MG Q DAY PO
     Route: 048
     Dates: start: 20050404, end: 20050404
  3. DEPAKENE [Suspect]
     Dosage: 1000 MG Q DAY PO
     Route: 048
     Dates: start: 20050405, end: 20050405
  4. RISPERDAL [Concomitant]
  5. RISPERDAL [Concomitant]
  6. DOMINAL [Concomitant]

REACTIONS (1)
  - DIARRHOEA [None]
